FAERS Safety Report 17942649 (Version 1)
Quarter: 2020Q2

REPORT INFORMATION
  Report Type: Spontaneous
  Country: DE (occurrence: DE)
  Receive Date: 20200625
  Receipt Date: 20200625
  Transmission Date: 20200714
  Serious: Yes (Death, Hospitalization)
  Sender: FDA-Public Use
  Company Number: DE-TEVA-2020-DE-1790604

PATIENT
  Age: 90 Year
  Sex: Male

DRUGS (19)
  1. TORASEMID [Concomitant]
     Active Substance: TORSEMIDE
     Dosage: 10 MG, 2-1-0-0
  2. APIXABAN [Concomitant]
     Active Substance: APIXABAN
     Dosage: 5 MILLIGRAM DAILY;  1-0-1-0
  3. DULCOLAX (BISACODYL) [Concomitant]
     Active Substance: BISACODYL
     Dosage: 1 DOSAGE FORMS DAILY; 0-0-1-0
  4. LACTULOSE. [Concomitant]
     Active Substance: LACTULOSE
     Dosage: REQUIREMENT
  5. VENLAFAXIN [Concomitant]
     Active Substance: VENLAFAXINE HYDROCHLORIDE
     Dosage: .5 DOSAGE FORMS DAILY; 150 MG, 0.5-0-0-0
  6. FENTANYL. [Suspect]
     Active Substance: FENTANYL
     Dosage: 25 UG, PFLASTER TRANSDERMAL
  7. KALINOR RETARD [Concomitant]
     Active Substance: POTASSIUM CHLORIDE
     Dosage: 2 DOSAGE FORMS DAILY; 1-1-0-0
  8. TIM-OPHTAL [Concomitant]
     Active Substance: TIMOLOL MALEATE
     Dosage: 2 DOSAGE FORMS DAILY; 1-0-1-0
     Route: 047
  9. COLECALCIFEROL (VITAMIN D) [Concomitant]
     Dosage: 1000 IU (INTERNATIONAL UNIT) DAILY;  1-0-0-0
  10. FOLS?URE [Concomitant]
     Dosage: .4 MILLIGRAM DAILY; , 0-1-0-0
  11. PREDNISOLON [Concomitant]
     Active Substance: PREDNISOLONE
     Dosage: 1.5 DOSAGE FORMS DAILY;  1.5-0-0-0
  12. ULTIBRO BREEZHALER 85MIKROGRAMM/43MIKROGRAMM [Concomitant]
     Dosage: 1 DOSAGE FORMS DAILY; 85/43 MG, 1-0-0-0
  13. TAMSULOSIN [Concomitant]
     Active Substance: TAMSULOSIN
     Dosage: .4 MILLIGRAM DAILY; 0-0-1-0
  14. ZOLPIDEM [Suspect]
     Active Substance: ZOLPIDEM TARTRATE
     Dosage: 5 MILLIGRAM DAILY;  0-0-0-1
  15. METAMIZOL [Concomitant]
     Active Substance: METAMIZOLE SODIUM
     Dosage: 500 MG, NEED
  16. BICALUTAMID [Concomitant]
     Active Substance: BICALUTAMIDE
     Dosage: 150 MILLIGRAM DAILY;  1-0-0-0
  17. BISOPROLOL [Concomitant]
     Active Substance: BISOPROLOL
     Dosage: 2.5 MILLIGRAM DAILY; 1-0-0-0
  18. THIAMAZOL [Concomitant]
     Active Substance: METHIMAZOLE
     Dosage: 5 MG, PAUSED
  19. BRONCHICUM TROPFEN [Concomitant]
     Dosage: REQUIREMENT

REACTIONS (9)
  - Musculoskeletal pain [Unknown]
  - Oedema peripheral [Unknown]
  - Wound [Unknown]
  - General physical health deterioration [Unknown]
  - Dyspnoea [Unknown]
  - Arrhythmia [Unknown]
  - Fall [Unknown]
  - Muscular weakness [Unknown]
  - Dizziness [Unknown]
